FAERS Safety Report 6313790-8 (Version None)
Quarter: 2009Q3

REPORT INFORMATION
  Report Type: 
  Country: None (occurrence: None)
  Receive Date: 20090818
  Receipt Date: 20090216
  Transmission Date: 20100115
  Serious: Yes (Hospitalization)
  Sender: FDA-Public Use
  Company Number: US-BRISTOL-MYERS SQUIBB COMPANY-14508535

PATIENT
  Sex: Male

DRUGS (3)
  1. REYATAZ [Suspect]
     Dates: start: 20071001
  2. TRUVADA [Suspect]
     Dates: start: 20071001
  3. NORVIR [Suspect]
     Dates: start: 20071001

REACTIONS (1)
  - PANCREATITIS ACUTE [None]
